FAERS Safety Report 17745853 (Version 1)
Quarter: 2020Q2

REPORT INFORMATION
  Report Type: Spontaneous
  Country: US (occurrence: US)
  Receive Date: 20200505
  Receipt Date: 20200505
  Transmission Date: 20200714
  Serious: Yes (Other)
  Sender: FDA-Public Use
  Company Number: None

PATIENT
  Age: 30 Month
  Sex: Male

DRUGS (1)
  1. FULPHILA [Suspect]
     Active Substance: PEGFILGRASTIM-JMDB
     Indication: ADRENAL GLAND CANCER
     Dosage: ?          OTHER FREQUENCY:UTD;?
     Route: 058
     Dates: start: 20200204

REACTIONS (2)
  - Eating disorder [None]
  - Decreased appetite [None]

NARRATIVE: CASE EVENT DATE: 20200504
